FAERS Safety Report 7878466-4 (Version None)
Quarter: 2011Q4

REPORT INFORMATION
  Report Type: 
  Country: None (occurrence: None)
  Receive Date: 20111012
  Receipt Date: 20110728
  Transmission Date: 20120403
  Serious: Yes (Other)
  Sender: FDA-Public Use
  Company Number: 037945

PATIENT
  Sex: Male
  Weight: 81.6 kg

DRUGS (2)
  1. KEPPRA [Suspect]
     Indication: CONVULSION
     Dosage: (500 MG BID ORAL), (500 MG TID ORAL)
     Route: 048
     Dates: start: 20110727
  2. KEPPRA [Suspect]
     Indication: CONVULSION
     Dosage: (500 MG BID ORAL), (500 MG TID ORAL)
     Route: 048
     Dates: start: 20110522, end: 20110701

REACTIONS (6)
  - INAPPROPRIATE SCHEDULE OF DRUG ADMINISTRATION [None]
  - CONVULSION [None]
  - RASH PRURITIC [None]
  - FALL [None]
  - HEAD INJURY [None]
  - HEADACHE [None]
